FAERS Safety Report 20885900 (Version 5)
Quarter: 2022Q4

REPORT INFORMATION
  Report Type: Report from Study
  Country: US (occurrence: US)
  Receive Date: 20220527
  Receipt Date: 20221008
  Transmission Date: 20230113
  Serious: Yes (Hospitalization, Other)
  Sender: FDA-Public Use
  Company Number: US-NOVARTISTESTPH-NVSC2022US121715

PATIENT
  Sex: Female

DRUGS (3)
  1. ENTRESTO [Suspect]
     Active Substance: SACUBITRIL\VALSARTAN
     Indication: Cardiac failure
     Dosage: 1 DOSAGE FORM, BID
     Route: 048
  2. ENTRESTO [Suspect]
     Active Substance: SACUBITRIL\VALSARTAN
     Dosage: 1 DOSAGE FORM, BID
     Route: 048
     Dates: start: 20220217
  3. LASIX [Concomitant]
     Active Substance: FUROSEMIDE
     Indication: Cardiac failure
     Dosage: UNK
     Route: 065

REACTIONS (8)
  - Cardiac failure congestive [Recovered/Resolved]
  - Urosepsis [Unknown]
  - Respiratory failure [Unknown]
  - Urinary tract infection [Recovered/Resolved]
  - Syncope [Unknown]
  - Cardiac arrest [Unknown]
  - Urinary tract infection [Recovered/Resolved]
  - Peripheral swelling [Unknown]

NARRATIVE: CASE EVENT DATE: 20220205
